FAERS Safety Report 8474955-2 (Version None)
Quarter: 2012Q2

REPORT INFORMATION
  Report Type: 
  Country: None (occurrence: None)
  Receive Date: 20120628
  Receipt Date: 20120625
  Transmission Date: 20120825
  Serious: Yes (Hospitalization)
  Sender: FDA-Public Use
  Company Number: PHEH2012US012489

PATIENT
  Sex: Female

DRUGS (3)
  1. GILENYA [Suspect]
     Indication: MULTIPLE SCLEROSIS
     Dosage: 0.5 MG, QD
     Route: 048
     Dates: start: 20120621, end: 20120623
  2. GABAPENTIN [Concomitant]
     Dosage: UNK UKN, UNK
  3. CYMBALTA [Concomitant]
     Dosage: UNK UKN, UNK

REACTIONS (3)
  - CHEST PAIN [None]
  - DYSPNOEA [None]
  - ASTHENIA [None]
